FAERS Safety Report 8123653-3 (Version None)
Quarter: 2012Q1

REPORT INFORMATION
  Report Type: 
  Country: None (occurrence: None)
  Receive Date: 20120208
  Receipt Date: 20120206
  Transmission Date: 20120608
  Serious: Yes (Hospitalization)
  Sender: FDA-Public Use
  Company Number: PHHY2012IT007094

PATIENT
  Sex: Female

DRUGS (2)
  1. MUSCORIL [Suspect]
     Indication: BACK PAIN
     Dosage: ONE POSOLOGIC UNIT, DAILY
     Route: 030
     Dates: start: 20120119, end: 20120119
  2. VOLTAREN [Suspect]
     Indication: BACK PAIN
     Dosage: ONE POSOLOGIC UNIT, DAILY
     Route: 030
     Dates: start: 20120119, end: 20120119

REACTIONS (3)
  - LOSS OF CONSCIOUSNESS [None]
  - HYPOTENSION [None]
  - LIP OEDEMA [None]
